FAERS Safety Report 25172996 (Version 1)
Quarter: 2025Q2

REPORT INFORMATION
  Report Type: Spontaneous
  Country: US (occurrence: None)
  Receive Date: 20250407
  Receipt Date: 20250407
  Transmission Date: 20250716
  Serious: No
  Sender: FDA-CTU
  Company Number: None

PATIENT
  Age: 70 Year
  Sex: Male

DRUGS (1)
  1. COLLAGENASE SANTYL [Suspect]
     Active Substance: COLLAGENASE CLOSTRIDIUM HISTOLYTICUM
     Indication: Ulcer
     Dosage: FREQUENCY : DAILY;?
     Route: 061
     Dates: start: 20250301, end: 20250401

REACTIONS (2)
  - Pain [None]
  - Therapy interrupted [None]

NARRATIVE: CASE EVENT DATE: 20250301
